FAERS Safety Report 7315624-1 (Version None)
Quarter: 2011Q1

REPORT INFORMATION
  Report Type: 
  Country: None (occurrence: None)
  Receive Date: 20110225
  Receipt Date: 20110216
  Transmission Date: 20110831
  Serious: No
  Sender: FDA-Public Use
  Company Number: US-GILEAD-2010-0031827

PATIENT
  Age: 25 Year
  Sex: Female

DRUGS (5)
  1. RETROVIR [Concomitant]
     Route: 042
     Dates: start: 20101229, end: 20101229
  2. NORVIR [Concomitant]
     Indication: HIV INFECTION
     Route: 048
     Dates: start: 20100331
  3. REYATAZ [Concomitant]
     Indication: HIV INFECTION
     Route: 048
     Dates: start: 20100331
  4. TRUVADA [Suspect]
     Indication: HIV INFECTION
     Route: 048
     Dates: start: 20100331
  5. RETROVIR [Concomitant]
     Indication: HIV INFECTION
     Route: 042
     Dates: start: 20101229, end: 20101229

REACTIONS (2)
  - ULTRASOUND ANTENATAL SCREEN ABNORMAL [None]
  - PREGNANCY [None]
